FAERS Safety Report 24835780 (Version 1)
Quarter: 2025Q1

REPORT INFORMATION
  Report Type: Report from Study
  Country: CO (occurrence: CO)
  Receive Date: 20250113
  Receipt Date: 20250113
  Transmission Date: 20250409
  Serious: Yes (Other)
  Sender: TAKEDA
  Company Number: CO-TAKEDA-2025TUS003247

PATIENT
  Age: 28 Year
  Sex: Male

DRUGS (3)
  1. ADVATE [Suspect]
     Active Substance: ANTIHEMOPHILIC FACTOR, HUMAN RECOMBINANT
     Indication: Factor VIII deficiency
     Dosage: 3000 INTERNATIONAL UNIT, 3/WEEK
     Dates: start: 20241101, end: 20241115
  2. ADVATE [Suspect]
     Active Substance: ANTIHEMOPHILIC FACTOR, HUMAN RECOMBINANT
     Indication: Prophylaxis
  3. ADVATE [Suspect]
     Active Substance: ANTIHEMOPHILIC FACTOR, HUMAN RECOMBINANT

REACTIONS (11)
  - Puncture site haematoma [Unknown]
  - Treatment noncompliance [Unknown]
  - Discouragement [Unknown]
  - Heat oedema [Unknown]
  - Pain [Unknown]
  - Gait disturbance [Unknown]
  - Flushing [Unknown]
  - Oedema peripheral [Unknown]
  - Vomiting [Unknown]
  - Rash [Not Recovered/Not Resolved]
  - Pyrexia [Recovered/Resolved]

NARRATIVE: CASE EVENT DATE: 20241101
